FAERS Safety Report 10243751 (Version 1)
Quarter: 2014Q2

REPORT INFORMATION
  Report Type: Report from Study
  Country: FR (occurrence: FR)
  Receive Date: 20140618
  Receipt Date: 20140618
  Transmission Date: 20141212
  Serious: Yes (Hospitalization)
  Sender: FDA-Public Use
  Company Number: FR-SA-2014SA077834

PATIENT
  Age: 58 Year
  Sex: Female

DRUGS (10)
  1. AFLIBERCEPT [Suspect]
     Indication: COLORECTAL CANCER METASTATIC
     Route: 042
     Dates: start: 20130701, end: 20130701
  2. AFLIBERCEPT [Suspect]
     Indication: COLORECTAL CANCER METASTATIC
     Route: 042
     Dates: start: 20140407, end: 20140407
  3. OXALIPLATIN [Suspect]
     Indication: COLORECTAL CANCER METASTATIC
     Route: 042
  4. OXALIPLATIN [Suspect]
     Indication: COLORECTAL CANCER METASTATIC
     Route: 042
  5. 5-FU [Suspect]
     Indication: COLORECTAL CANCER METASTATIC
     Route: 040
  6. 5-FU [Suspect]
     Indication: COLORECTAL CANCER METASTATIC
     Route: 041
  7. 5-FU [Suspect]
     Indication: COLORECTAL CANCER METASTATIC
     Route: 040
  8. 5-FU [Suspect]
     Indication: COLORECTAL CANCER METASTATIC
     Route: 041
  9. LEUCOVORIN [Suspect]
     Indication: COLORECTAL CANCER METASTATIC
     Route: 042
  10. LEUCOVORIN [Suspect]
     Indication: COLORECTAL CANCER METASTATIC
     Route: 042

REACTIONS (1)
  - Myocardial infarction [Recovered/Resolved]
